FAERS Safety Report 20016774 (Version 1)
Quarter: 2021Q4

REPORT INFORMATION
  Report Type: Spontaneous
  Country: US (occurrence: None)
  Receive Date: 20211104
  Receipt Date: 20211104
  Transmission Date: 20220303
  Serious: Yes (Life-Threatening)
  Sender: FDA-Public Use
  Company Number: None

PATIENT
  Age: 56 Year
  Sex: Female
  Weight: 108.9 kg

DRUGS (22)
  1. BARICITINIB [Suspect]
     Active Substance: BARICITINIB
     Indication: COVID-19
     Dosage: FREQUENCY : DAILY;?
     Route: 048
     Dates: start: 20211018, end: 20211026
  2. REMDESIVIR [Concomitant]
     Active Substance: REMDESIVIR
     Dates: start: 20211017, end: 20211025
  3. ACETAMINOPHEN [Concomitant]
     Active Substance: ACETAMINOPHEN
     Dates: start: 20211022, end: 20211030
  4. ACYCLOVIR [Concomitant]
     Active Substance: ACYCLOVIR
     Dates: start: 20211017, end: 20211031
  5. ALBUTEROL [Concomitant]
     Active Substance: ALBUTEROL
     Dates: start: 20211016, end: 20211030
  6. ROCEPHIN [Concomitant]
     Active Substance: CEFTRIAXONE SODIUM
     Dates: start: 20211026, end: 20211028
  7. peredix [Concomitant]
     Dates: start: 20211019, end: 20211031
  8. FENTANYL [Concomitant]
     Active Substance: FENTANYL
     Dates: start: 20211016, end: 20211031
  9. INSULIN NOS [Concomitant]
     Active Substance: INSULIN NOS
     Dates: start: 20211024, end: 20211031
  10. MEROPENEM [Concomitant]
     Active Substance: MEROPENEM
     Dates: start: 20211017, end: 20211026
  11. REGLAN [Concomitant]
     Active Substance: METOCLOPRAMIDE HYDROCHLORIDE
     Dates: start: 20211021, end: 20211031
  12. LOPRESSOR [Concomitant]
     Active Substance: METOPROLOL TARTRATE
     Dates: start: 20211025, end: 20211028
  13. MICAFUNGIN [Concomitant]
     Active Substance: MICAFUNGIN
     Dates: start: 20211027, end: 20211031
  14. VERSED [Concomitant]
     Active Substance: MIDAZOLAM HYDROCHLORIDE
     Dates: start: 20211017, end: 20211031
  15. ZYPREXA [Concomitant]
     Active Substance: OLANZAPINE
     Dates: start: 20211017, end: 20211028
  16. PROTONIX [Concomitant]
     Active Substance: PANTOPRAZOLE SODIUM
     Dates: start: 20211017, end: 20211031
  17. ZOFRAN [Concomitant]
     Active Substance: ONDANSETRON HYDROCHLORIDE
     Dates: start: 20211022, end: 20211024
  18. POSACONAZOLE [Concomitant]
     Active Substance: POSACONAZOLE
     Dates: start: 20211026, end: 20211027
  19. PROGRAF [Concomitant]
     Active Substance: TACROLIMUS
     Dates: start: 20211025, end: 20211031
  20. VORICONAZOLE [Concomitant]
     Active Substance: VORICONAZOLE
     Dates: start: 20211018, end: 20211026
  21. CEFEPIME [Concomitant]
     Active Substance: CEFEPIME HYDROCHLORIDE
     Dates: start: 20211028, end: 20211031
  22. LEVOPHED [Concomitant]
     Active Substance: NOREPINEPHRINE BITARTRATE
     Dates: start: 20211028, end: 20211031

REACTIONS (5)
  - Hepatic enzyme increased [None]
  - Drug interaction [None]
  - Septic shock [None]
  - Atrial fibrillation [None]
  - Death [None]

NARRATIVE: CASE EVENT DATE: 20211030
